FAERS Safety Report 25057254 (Version 1)
Quarter: 2025Q1

REPORT INFORMATION
  Report Type: Spontaneous
  Country: US (occurrence: US)
  Receive Date: 20250310
  Receipt Date: 20250310
  Transmission Date: 20250409
  Serious: No
  Sender: AJANTA PHARMA USA INC
  Company Number: US-AJANTA-2025AJA00027

PATIENT
  Sex: Male
  Weight: 180 kg

DRUGS (4)
  1. CHOLESTYRAMINE [Suspect]
     Active Substance: CHOLESTYRAMINE
     Indication: Irritable bowel syndrome
     Route: 048
  2. CHOLESTYRAMINE [Suspect]
     Active Substance: CHOLESTYRAMINE
     Route: 048
  3. CHOLESTYRAMINE [Suspect]
     Active Substance: CHOLESTYRAMINE
     Route: 048
  4. ONFI [Concomitant]
     Active Substance: CLOBAZAM

REACTIONS (4)
  - Drug intolerance [Unknown]
  - Nausea [Unknown]
  - Product taste abnormal [Unknown]
  - Product use in unapproved indication [Unknown]
